FAERS Safety Report 16224005 (Version 2)
Quarter: 2019Q2

REPORT INFORMATION
  Report Type: Spontaneous
  Country: US (occurrence: US)
  Receive Date: 20190422
  Receipt Date: 20190625
  Transmission Date: 20190711
  Serious: Yes (Death)
  Sender: FDA-Public Use
  Company Number: US-PFIZER INC-2019165555

PATIENT
  Age: 57 Year
  Sex: Male
  Weight: 54.4 kg

DRUGS (1)
  1. XALKORI [Suspect]
     Active Substance: CRIZOTINIB
     Indication: LUNG CANCER METASTATIC
     Dosage: 250 MG, 2X/DAY
     Route: 048
     Dates: start: 20190212

REACTIONS (6)
  - Vomiting [Unknown]
  - Fatigue [Unknown]
  - Hypersomnia [Unknown]
  - Death [Fatal]
  - Decreased appetite [Unknown]
  - Intentional product misuse [Unknown]

NARRATIVE: CASE EVENT DATE: 201903
